FAERS Safety Report 6993151-9 (Version None)
Quarter: 2010Q3

REPORT INFORMATION
  Report Type: 
  Country: None (occurrence: None)
  Receive Date: 20100917
  Receipt Date: 20100517
  Transmission Date: 20110219
  Serious: Yes (Other)
  Sender: FDA-Public Use
  Company Number: US-ASTRAZENECA-2009SE17052

PATIENT
  Sex: Male

DRUGS (7)
  1. SEROQUEL [Suspect]
     Dosage: 100-400 MG
     Route: 048
     Dates: start: 20081212
  2. DIAZEPAM [Concomitant]
     Indication: MUSCLE SPASMS
     Dates: start: 20081105
  3. LEXAPRO [Concomitant]
     Dates: start: 20081117
  4. VENLAFAXINE HCL [Concomitant]
     Route: 048
     Dates: start: 20081208
  5. GABAPENTIN [Concomitant]
     Route: 048
     Dates: start: 20081211
  6. PROPOXYPHENE HCL [Concomitant]
     Route: 048
     Dates: start: 20090122
  7. INDOMETHACIN [Concomitant]
     Dates: start: 20090202

REACTIONS (1)
  - TYPE 2 DIABETES MELLITUS [None]
